FAERS Safety Report 10037670 (Version 1)
Quarter: 2014Q1

REPORT INFORMATION
  Report Type: Spontaneous
  Country: US (occurrence: None)
  Receive Date: 20140306
  Receipt Date: 20140306
  Transmission Date: 20141002
  Serious: Yes (Other)
  Sender: FDA-Public Use
  Company Number: 163-21880-13080068

PATIENT
  Age: 87 Year
  Sex: Male
  Weight: 86.2 kg

DRUGS (8)
  1. REVLIMID (LENALIDOMIDE) (25 MILLIGRAM, CAPSULES) [Suspect]
     Indication: PLASMA CELL MYELOMA
     Dosage: 21 IN 28 D
     Route: 048
     Dates: start: 201003
  2. DETROL (TOLTERODINE L-TARTRATE) [Concomitant]
  3. GLIMEPIRIDE [Concomitant]
  4. LEVOTHRYOXINE [Concomitant]
  5. MULTIVITAMINS [Concomitant]
  6. ASPIRIN (ACETYLSALICYLIC ACID) [Concomitant]
  7. AMLODIPINE BESYLATE [Suspect]
  8. LISINOPRIL [Concomitant]

REACTIONS (1)
  - Thrombosis [None]
